FAERS Safety Report 8421932-3 (Version None)
Quarter: 2012Q2

REPORT INFORMATION
  Report Type: 
  Country: None (occurrence: None)
  Receive Date: 20120608
  Receipt Date: 20120601
  Transmission Date: 20120825
  Serious: Yes (Hospitalization, Other)
  Sender: FDA-Public Use
  Company Number: PHHY2012BR048015

PATIENT
  Age: 76 Year
  Sex: Female
  Weight: 89 kg

DRUGS (9)
  1. CIPROFLOXACIN [Suspect]
     Indication: URINARY TRACT INFECTION
  2. ENALAPRIL MALEATE [Suspect]
     Indication: HYPERTENSION
     Route: 048
  3. AMLODIPINE [Concomitant]
     Indication: HYPERTENSION
     Dosage: 1 DF, BID
     Route: 048
     Dates: start: 20120601
  4. ATENOLOL [Concomitant]
     Dosage: 1 DF, BID
     Route: 048
  5. METFORMIN HCL [Concomitant]
     Indication: DIABETES MELLITUS
     Dosage: 1 DF, BID
     Route: 048
  6. METFORMIN HCL [Suspect]
     Indication: DIABETES MELLITUS
     Route: 048
  7. VASOGARD [Concomitant]
     Indication: CIRCULATORY COLLAPSE
     Route: 048
  8. NORFLOXACIN [Suspect]
     Indication: URINARY TRACT INFECTION
     Dosage: 400 MG, QD
     Route: 048
  9. GALVUS [Concomitant]
     Dosage: 1 DF, BID
     Route: 048
     Dates: start: 20120601

REACTIONS (8)
  - IRON DEFICIENCY ANAEMIA [None]
  - RENAL FAILURE [None]
  - HYPERTENSION [None]
  - COUGH [None]
  - CARDIOVASCULAR DISORDER [None]
  - URINARY TRACT INFECTION [None]
  - PATHOGEN RESISTANCE [None]
  - DRUG INEFFECTIVE [None]
